FAERS Safety Report 25723721 (Version 1)
Quarter: 2025Q3

REPORT INFORMATION
  Report Type: Spontaneous
  Country: US (occurrence: US)
  Receive Date: 20250825
  Receipt Date: 20250825
  Transmission Date: 20251021
  Serious: Yes (Other)
  Sender: BIOMARIN
  Company Number: US-BIOMARINAP-US-2025-168231

PATIENT
  Age: 1 Year

DRUGS (1)
  1. VOXZOGO [Suspect]
     Active Substance: VOSORITIDE
     Indication: Osteochondrodysplasia

REACTIONS (4)
  - Spinal decompression [Unknown]
  - Ventriculo-peritoneal shunt [Unknown]
  - Crying [Unknown]
  - Injection site pain [Unknown]
